FAERS Safety Report 5581289-2 (Version None)
Quarter: 2008Q1

REPORT INFORMATION
  Report Type: 
  Country: None (occurrence: None)
  Receive Date: 20080104
  Receipt Date: 20071225
  Transmission Date: 20080703
  Serious: Yes (Hospitalization)
  Sender: FDA-Public Use
  Company Number: FR-JNJFOC-20071202654

PATIENT
  Age: 80 Year
  Sex: Male

DRUGS (7)
  1. OFLOCET [Suspect]
     Indication: DEVICE RELATED INFECTION
     Route: 048
  2. LOVENOX [Suspect]
     Indication: PHLEBITIS
     Route: 058
  3. RIFADIN [Concomitant]
     Route: 048
  4. RIFADIN [Concomitant]
     Indication: DEVICE RELATED INFECTION
     Route: 048
  5. TARDYFERON [Concomitant]
     Indication: ANAEMIA
     Route: 048
  6. ZOLADEX [Concomitant]
     Indication: PROSTATE CANCER
     Route: 058
  7. INNOHEP [Concomitant]
     Indication: PROPHYLAXIS
     Route: 065

REACTIONS (1)
  - VASCULAR PURPURA [None]
